FAERS Safety Report 7898128-7 (Version None)
Quarter: 2011Q4

REPORT INFORMATION
  Report Type: 
  Country: None (occurrence: None)
  Receive Date: 20111107
  Receipt Date: 20111028
  Transmission Date: 20120403
  Serious: Yes (Hospitalization)
  Sender: FDA-Public Use
  Company Number: AU-MERCK-1110USA03964

PATIENT
  Age: 68 Year
  Sex: Male

DRUGS (4)
  1. ATENOLOL [Suspect]
     Route: 048
  2. ZOCOR [Suspect]
     Indication: METABOLIC DISORDER
     Route: 048
  3. METFORMIN HYDROCHLORIDE [Concomitant]
     Route: 065
  4. FUROSEMIDE [Concomitant]
     Route: 065

REACTIONS (2)
  - HYPERTENSION [None]
  - ANGINA UNSTABLE [None]
